FAERS Safety Report 5682207-9 (Version None)
Quarter: 2008Q1

REPORT INFORMATION
  Report Type: 
  Country: None (occurrence: None)
  Receive Date: 20080327
  Receipt Date: 20080327
  Transmission Date: 20080703
  Serious: Yes (Hospitalization)
  Sender: FDA-Public Use
  Company Number: None

PATIENT
  Age: 73 Year
  Sex: Male
  Weight: 67.6 kg

DRUGS (1)
  1. HEPARIN [Suspect]
     Indication: THERAPEUTIC PROCEDURE
     Dosage: 70 UNITS/KG BOLUS IV PUSH IV BOLUS
     Route: 040
     Dates: start: 20080305, end: 20080327

REACTIONS (1)
  - BLOOD PRESSURE DECREASED [None]
